FAERS Safety Report 5005310-5 (Version None)
Quarter: 2006Q2

REPORT INFORMATION
  Report Type: 
  Country: None (occurrence: None)
  Receive Date: 20060518
  Receipt Date: 20060515
  Transmission Date: 20061013
  Serious: Yes (Life-Threatening)
  Sender: FDA-Public Use
  Company Number: 2006JP001381

PATIENT
  Age: 62 Year
  Sex: Male

DRUGS (5)
  1. CEFAZOLIN [Suspect]
     Indication: SENSORY DISTURBANCE
     Dosage: 2G PER DAY
     Route: 065
     Dates: start: 20051012
  2. MIDAZOLAM HCL [Suspect]
     Indication: SENSORY DISTURBANCE
     Dosage: 2MG PER DAY
     Route: 065
     Dates: start: 20051012
  3. GENTAMICIN SULFATE [Suspect]
     Indication: DRUG USE FOR UNKNOWN INDICATION
     Dosage: 360MG PER DAY
     Route: 065
     Dates: start: 20051012
  4. THIOPENTONE SODIUM [Suspect]
     Indication: DRUG USE FOR UNKNOWN INDICATION
     Dosage: 325MG PER DAY
     Route: 065
     Dates: start: 20051012
  5. PANCURONIUM BROMIDE [Suspect]
     Indication: DRUG USE FOR UNKNOWN INDICATION
     Dosage: 12MG PER DAY
     Route: 065
     Dates: start: 20051012

REACTIONS (4)
  - BRONCHOSPASM [None]
  - ERYTHEMA [None]
  - HYPOTENSION [None]
  - TACHYCARDIA [None]
